FAERS Safety Report 13903181 (Version 1)
Quarter: 2017Q3

REPORT INFORMATION
  Report Type: Report from Study
  Country: AU (occurrence: AU)
  Receive Date: 20170824
  Receipt Date: 20170824
  Transmission Date: 20171127
  Serious: Yes (Hospitalization, Other)
  Sender: FDA-Public Use
  Company Number: AU-BRISTOL-MYERS SQUIBB COMPANY-BMS-2017-075371

PATIENT
  Age: 27 Year
  Sex: Male
  Weight: 122 kg

DRUGS (11)
  1. METFORMIN HYDROCHLORIDE. [Suspect]
     Active Substance: METFORMIN HYDROCHLORIDE
     Indication: PRODUCT USED FOR UNKNOWN INDICATION
     Route: 065
  2. AMITRIPTYLINE                      /00002202/ [Concomitant]
     Active Substance: AMITRIPTYLINE
     Indication: PRODUCT USED FOR UNKNOWN INDICATION
     Dosage: 25 MG, QD
     Route: 065
  3. DOBUTAMINE HYDROCHLORIDE. [Suspect]
     Active Substance: DOBUTAMINE HYDROCHLORIDE
     Indication: PRODUCT USED FOR UNKNOWN INDICATION
     Route: 065
  4. PERINDOPRIL [Suspect]
     Active Substance: PERINDOPRIL
     Indication: PRODUCT USED FOR UNKNOWN INDICATION
     Dosage: 5 MG, QD
     Route: 065
     Dates: start: 20170621
  5. LEPONEX [Suspect]
     Active Substance: CLOZAPINE
     Indication: PRODUCT USED FOR UNKNOWN INDICATION
     Dosage: UNK
     Route: 048
  6. LEPONEX [Suspect]
     Active Substance: CLOZAPINE
     Indication: PRODUCT USED FOR UNKNOWN INDICATION
     Dosage: 650 MG, BID
     Route: 065
  7. BISOPROLOL                         /00802602/ [Suspect]
     Active Substance: BISOPROLOL
     Indication: PRODUCT USED FOR UNKNOWN INDICATION
     Dosage: 5 MG, QD
     Route: 065
     Dates: start: 20170621
  8. LEPONEX [Suspect]
     Active Substance: CLOZAPINE
     Indication: SCHIZOPHRENIA
     Dosage: 900 MG, QD
     Route: 048
     Dates: start: 20020712, end: 20041208
  9. LEPONEX [Suspect]
     Active Substance: CLOZAPINE
     Indication: PRODUCT USED FOR UNKNOWN INDICATION
     Dosage: 700MG, BID
     Route: 065
  10. LEPONEX [Suspect]
     Active Substance: CLOZAPINE
     Indication: PRODUCT USED FOR UNKNOWN INDICATION
     Dosage: 675MG, BID
     Route: 065
  11. DIAZEPAM W/ISOPROPAMIDE IODIDE [Concomitant]
     Indication: PRODUCT USED FOR UNKNOWN INDICATION
     Dosage: 5 MG, TID
     Route: 065

REACTIONS (16)
  - Schizophrenia [Recovering/Resolving]
  - Blood pressure increased [Unknown]
  - Drooling [Not Recovered/Not Resolved]
  - Weight decreased [Unknown]
  - Salivary hypersecretion [Not Recovered/Not Resolved]
  - Obesity [Unknown]
  - Alanine aminotransferase increased [Unknown]
  - Insulin resistance [Unknown]
  - Cardiac failure [Unknown]
  - Antipsychotic drug level increased [Unknown]
  - Myocarditis [Unknown]
  - Psychotic disorder [Not Recovered/Not Resolved]
  - Cardiomyopathy [Unknown]
  - Blood triglycerides increased [Unknown]
  - Transferrin saturation decreased [Unknown]
  - Aspartate aminotransferase increased [Unknown]

NARRATIVE: CASE EVENT DATE: 20041206
